FAERS Safety Report 16218723 (Version 2)
Quarter: 2019Q2

REPORT INFORMATION
  Report Type: Spontaneous
  Country: US (occurrence: US)
  Receive Date: 20190419
  Receipt Date: 20190508
  Transmission Date: 20190711
  Serious: No
  Sender: FDA-Public Use
  Company Number: US-CELGENEUS-USA-20190406234

PATIENT
  Age: 32 Year
  Sex: Male

DRUGS (8)
  1. RIFAMPIN. [Concomitant]
     Active Substance: RIFAMPIN
     Indication: LEPROSY
     Dosage: 600 MILLIGRAM
     Route: 065
     Dates: start: 20181216
  2. THALOMID [Suspect]
     Active Substance: THALIDOMIDE
     Dosage: 150 MILLIGRAM
     Route: 048
     Dates: start: 20190319, end: 20190326
  3. DAPSONE. [Concomitant]
     Active Substance: DAPSONE
     Indication: LEPROSY
     Dosage: 100 MILLIGRAM
     Route: 065
     Dates: start: 20170305
  4. CLARITHROMYCIN. [Concomitant]
     Active Substance: CLARITHROMYCIN
     Indication: LEPROSY
     Dosage: 500 MILLIGRAM
     Route: 065
     Dates: start: 20170228, end: 20181101
  5. THALOMID [Suspect]
     Active Substance: THALIDOMIDE
     Indication: TYPE 2 LEPRA REACTION
     Dosage: 150 MILLIGRAM
     Route: 048
     Dates: start: 20190212, end: 2019
  6. PREDNISONE. [Concomitant]
     Active Substance: PREDNISONE
     Indication: TYPE 2 LEPRA REACTION
     Dosage: 20-40
     Route: 065
     Dates: start: 20170221
  7. CLOFAZIMINE [Concomitant]
     Active Substance: CLOFAZIMINE
     Indication: LEPROSY
     Dosage: 50 MILLIGRAM
     Route: 065
     Dates: start: 20170428, end: 20181216
  8. THALOMID [Suspect]
     Active Substance: THALIDOMIDE
     Dosage: 50 MILLIGRAM
     Route: 048
     Dates: start: 20190419

REACTIONS (3)
  - Dyspnoea [Unknown]
  - Somnolence [Unknown]
  - Palpitations [Unknown]

NARRATIVE: CASE EVENT DATE: 2019
